FAERS Safety Report 8485722-8 (Version None)
Quarter: 2012Q3

REPORT INFORMATION
  Report Type: 
  Country: None (occurrence: None)
  Receive Date: 20120703
  Receipt Date: 20120622
  Transmission Date: 20120928
  Serious: Yes (Hospitalization)
  Sender: FDA-Public Use
  Company Number: JP-VERTEX PHARMACEUTICALS INC.-AE-2012-009473

PATIENT
  Age: 49 Year
  Sex: Female

DRUGS (12)
  1. RIBAVIRIN [Concomitant]
     Route: 048
     Dates: start: 20120223, end: 20120314
  2. RIBAVIRIN [Concomitant]
     Route: 048
     Dates: start: 20120329
  3. RIBAVIRIN [Concomitant]
     Route: 048
     Dates: end: 20120412
  4. PEGINTERFERON ALFA-2B [Concomitant]
     Route: 058
     Dates: start: 20120501
  5. PEGINTERFERON ALFA-2B [Concomitant]
     Route: 058
  6. RIBAVIRIN [Concomitant]
     Route: 048
     Dates: start: 20120315, end: 20120328
  7. RIBAVIRIN [Concomitant]
     Route: 048
     Dates: start: 20120501
  8. PEGINTERFERON ALFA-2B [Concomitant]
     Route: 058
     Dates: end: 20120412
  9. TELAVIC (TELAPREVIR) [Suspect]
     Indication: HEPATITIS C
     Route: 048
     Dates: start: 20120223
  10. TELAVIC (TELAPREVIR) [Suspect]
     Route: 048
     Dates: end: 20120412
  11. PEGINTERFERON ALFA-2B [Concomitant]
     Route: 058
     Dates: start: 20120426
  12. RIBAVIRIN [Concomitant]
     Route: 048
     Dates: start: 20120426

REACTIONS (1)
  - RESTLESS LEGS SYNDROME [None]
